FAERS Safety Report 21286153 (Version 3)
Quarter: 2022Q4

REPORT INFORMATION
  Report Type: Spontaneous
  Country: JP (occurrence: JP)
  Receive Date: 20220902
  Receipt Date: 20221003
  Transmission Date: 20230112
  Serious: Yes (Death, Hospitalization, Other)
  Sender: FDA-Public Use
  Company Number: JP-GSKNCCC-Case-01563037_AE-61733

PATIENT

DRUGS (3)
  1. LAMICTAL [Suspect]
     Active Substance: LAMOTRIGINE
     Indication: Epilepsy
     Dosage: 25 MG, QD
     Dates: start: 20220703, end: 20220712
  2. LAMICTAL [Suspect]
     Active Substance: LAMOTRIGINE
     Dosage: 25 MG/DAY (RESUMED)
     Dates: start: 20220723, end: 20220728
  3. LAMICTAL [Suspect]
     Active Substance: LAMOTRIGINE
     Dosage: 50 MG/DAY (INCREASED 6 DAYS LATER)
     Dates: start: 20220728

REACTIONS (7)
  - Hospitalisation [Unknown]
  - COVID-19 [Fatal]
  - COVID-19 pneumonia [Fatal]
  - Drug titration error [Unknown]
  - Prescribed overdose [Unknown]
  - Drug ineffective [Unknown]
  - Off label use [Unknown]
